FAERS Safety Report 9713384 (Version 1)
Quarter: 2013Q4

REPORT INFORMATION
  Report Type: Report from Study
  Country: NL (occurrence: NL)
  Receive Date: 20131126
  Receipt Date: 20131126
  Transmission Date: 20140711
  Serious: Yes (Disabling)
  Sender: FDA-Public Use
  Company Number: NL-MYLANLABS-2013S1025993

PATIENT
  Age: 7 Decade
  Sex: Female

DRUGS (4)
  1. ALENDRONIC ACID [Suspect]
     Indication: OSTEOPOROSIS
     Route: 065
  2. FLUTICASONE PROPIONATE [Concomitant]
     Route: 045
  3. CALCIUM [Concomitant]
     Route: 065
  4. PSYLLIUM /01328801/ [Concomitant]
     Dosage: PSYLLIUM
     Route: 065

REACTIONS (3)
  - Vision blurred [Not Recovered/Not Resolved]
  - Dizziness [Unknown]
  - Vomiting [Unknown]
